FAERS Safety Report 25343457 (Version 2)
Quarter: 2025Q3

REPORT INFORMATION
  Report Type: Report from Study
  Country: US (occurrence: US)
  Receive Date: 20250521
  Receipt Date: 20250905
  Transmission Date: 20251021
  Serious: No
  Sender: TAKEDA
  Company Number: US-TAKEDA-2025TUS046469

PATIENT
  Sex: Male

DRUGS (1)
  1. VORTIOXETINE [Suspect]
     Active Substance: VORTIOXETINE
     Indication: Mixed anxiety and depressive disorder

REACTIONS (9)
  - Panic attack [Unknown]
  - Feeling of body temperature change [Unknown]
  - Depression [Unknown]
  - Thinking abnormal [Unknown]
  - Crying [Unknown]
  - Chills [Unknown]
  - Withdrawal syndrome [Unknown]
  - Product use issue [Unknown]
  - Vomiting [Unknown]
